FAERS Safety Report 15561749 (Version 28)
Quarter: 2022Q4

REPORT INFORMATION
  Report Type: Spontaneous
  Country: BR (occurrence: BR)
  Receive Date: 20181029
  Receipt Date: 20221213
  Transmission Date: 20230112
  Serious: Yes (Hospitalization, Other)
  Sender: FDA-Public Use
  Company Number: BR-GLAXOSMITHKLINE-BR2017GSK201070

PATIENT

DRUGS (8)
  1. BENLYSTA [Suspect]
     Active Substance: BELIMUMAB
     Indication: Systemic lupus erythematosus
     Dosage: UNK
     Route: 042
     Dates: start: 20140901
  2. BENLYSTA [Suspect]
     Active Substance: BELIMUMAB
     Dosage: 570 MG
  3. BENLYSTA [Suspect]
     Active Substance: BELIMUMAB
     Dosage: 400 MG, Z
     Route: 042
     Dates: start: 20171106
  4. SERTRALINE [Concomitant]
     Active Substance: SERTRALINE HYDROCHLORIDE
     Indication: Product used for unknown indication
     Dosage: UNK
  5. AZATHIOPRINE [Concomitant]
     Active Substance: AZATHIOPRINE
     Indication: Product used for unknown indication
     Dosage: UNK
  6. MOTILIUM [Concomitant]
     Active Substance: DOMPERIDONE
     Indication: Oesophagitis
     Dosage: UNK
  7. HYDROXYCHLOROQUINE [Concomitant]
     Active Substance: HYDROXYCHLOROQUINE
     Indication: Product used for unknown indication
     Dosage: UNK
  8. DEXILANT [Concomitant]
     Active Substance: DEXLANSOPRAZOLE
     Indication: Oesophagitis
     Dosage: UNK

REACTIONS (19)
  - Pneumonia [Recovered/Resolved]
  - Anaemia [Recovered/Resolved]
  - Alopecia [Recovered/Resolved]
  - Sinusitis [Recovered/Resolved]
  - Pain [Recovered/Resolved]
  - Amenorrhoea [Recovered/Resolved]
  - Headache [Not Recovered/Not Resolved]
  - Hormone level abnormal [Unknown]
  - Feeling hot [Recovering/Resolving]
  - Suspected COVID-19 [Unknown]
  - Weight fluctuation [Recovered/Resolved]
  - SARS-CoV-2 test positive [Unknown]
  - COVID-19 [Unknown]
  - Social problem [Unknown]
  - Product availability issue [Unknown]
  - Product dose omission issue [Unknown]
  - Circumstance or information capable of leading to medication error [Unknown]
  - Inappropriate schedule of product administration [Unknown]
  - Product supply issue [Unknown]

NARRATIVE: CASE EVENT DATE: 20210501
